FAERS Safety Report 6359353-X (Version None)
Quarter: 2009Q3

REPORT INFORMATION
  Report Type: 
  Country: None (occurrence: None)
  Receive Date: 20090917
  Receipt Date: 20090910
  Transmission Date: 20100115
  Serious: Yes (Death, Hospitalization)
  Sender: FDA-Public Use
  Company Number: JP-BAYER-200912897BYL

PATIENT
  Age: 77 Year
  Sex: Male
  Weight: 60 kg

DRUGS (18)
  1. NEXAVAR [Suspect]
     Indication: HEPATIC NEOPLASM MALIGNANT
     Dosage: UNIT DOSE: 200 MG
     Route: 048
     Dates: start: 20090714, end: 20090724
  2. NEXAVAR [Suspect]
     Dosage: UNIT DOSE: 200 MG
     Route: 048
     Dates: start: 20090725, end: 20090806
  3. PROTECADIN [Concomitant]
     Route: 048
  4. BEZATOL SR [Concomitant]
     Route: 048
  5. GASMOTIN [Concomitant]
     Route: 048
  6. HALCION [Concomitant]
     Route: 048
  7. JUVELA N [Concomitant]
     Route: 048
  8. LECICARBON [Concomitant]
     Route: 054
  9. HYPEN [Concomitant]
     Route: 048
  10. LASIX [Concomitant]
     Route: 048
  11. PRORENAL [Concomitant]
     Route: 048
  12. LIVACT [Concomitant]
     Route: 048
  13. ALOSENN [Concomitant]
     Route: 048
  14. LACTULOSE [Concomitant]
     Route: 048
  15. MAGNESIUM OXIDE HEAVY [Concomitant]
     Route: 048
  16. ADALAT CC [Concomitant]
     Route: 048
  17. ANTEBATE:OINTMENT [Concomitant]
     Route: 062
  18. LOXONIN [Concomitant]
     Route: 062

REACTIONS (3)
  - HEPATIC FUNCTION ABNORMAL [None]
  - HEPATIC NEOPLASM MALIGNANT [None]
  - JAUNDICE [None]
